FAERS Safety Report 18945560 (Version 1)
Quarter: 2021Q1

REPORT INFORMATION
  Report Type: Report from Study
  Country: NL (occurrence: NL)
  Receive Date: 20210226
  Receipt Date: 20210226
  Transmission Date: 20210420
  Serious: Yes (Hospitalization)
  Sender: FDA-Public Use
  Company Number: NL-ROCHE-2519249

PATIENT
  Age: 76 Year
  Sex: Male
  Weight: 79.3 kg

DRUGS (7)
  1. BLINDED IBRUTINIB [Suspect]
     Active Substance: IBRUTINIB
     Indication: B-CELL LYMPHOMA
     Dosage: THE LAST DOSE OF IBRUTINIB/PLACEBO PRIOR TO THE EVENT WAS ON 14/MAY/2019.
     Route: 048
     Dates: start: 20190321, end: 20190514
  2. RITUXIMAB. [Suspect]
     Active Substance: RITUXIMAB
     Indication: B-CELL LYMPHOMA
     Dosage: THE LAST DOSE OF RITUXIMAB PRIOR TO THE EVENT WAS ON 11/APR/2019.
     Route: 042
     Dates: start: 20190321, end: 20190411
  3. METOCLOPRAMIDE. [Concomitant]
     Active Substance: METOCLOPRAMIDE
     Indication: NAUSEA
     Dosage: 3X PER DAY (10 MG,AS REQUIRED)
  4. AVODART [Concomitant]
     Active Substance: DUTASTERIDE
  5. NAPROXEN. [Concomitant]
     Active Substance: NAPROXEN
  6. PARACETAMOL [Concomitant]
     Active Substance: ACETAMINOPHEN
     Indication: PAIN
     Route: 048
  7. OMEPRAZOLE. [Concomitant]
     Active Substance: OMEPRAZOLE

REACTIONS (2)
  - Cardiac failure [Recovered/Resolved]
  - Atrial fibrillation [Not Recovered/Not Resolved]

NARRATIVE: CASE EVENT DATE: 20190516
